FAERS Safety Report 17226310 (Version 1)
Quarter: 2020Q1

REPORT INFORMATION
  Report Type: Spontaneous
  Country: US (occurrence: US)
  Receive Date: 20200102
  Receipt Date: 20200102
  Transmission Date: 20200409
  Serious: No
  Sender: FDA-Public Use
  Company Number: US-FOUNDATIONCONSUMERHC-2019-US-020224

PATIENT
  Age: 39 Year
  Sex: Female
  Weight: 51.71 kg

DRUGS (3)
  1. AFTERA [Suspect]
     Active Substance: LEVONORGESTREL
     Indication: POST COITAL CONTRACEPTION
     Dosage: 1.5 MG X 1 DOSE
     Route: 048
     Dates: start: 20191004, end: 20191004
  2. MULTIVITAMIN [Concomitant]
     Active Substance: VITAMINS
  3. BENADRLY [Concomitant]

REACTIONS (7)
  - Vaginal haemorrhage [Recovered/Resolved]
  - Vaginal discharge [Not Recovered/Not Resolved]
  - Dysmenorrhoea [Recovered/Resolved]
  - Breast tenderness [Not Recovered/Not Resolved]
  - Headache [Recovered/Resolved]
  - Vaginal haemorrhage [Recovered/Resolved]
  - Menstruation delayed [Not Recovered/Not Resolved]

NARRATIVE: CASE EVENT DATE: 20191006
